FAERS Safety Report 9107006 (Version 2)
Quarter: 2013Q4

REPORT INFORMATION
  Report Type: Spontaneous
  Country: US (occurrence: US)
  Receive Date: 20130221
  Receipt Date: 20131016
  Transmission Date: 20140711
  Serious: No
  Sender: FDA-Public Use
  Company Number: US-009507513-1302USA008343

PATIENT
  Sex: Male

DRUGS (6)
  1. RIBAVIRIN [Suspect]
     Indication: HEPATITIS C
     Dosage: UNK
     Route: 048
     Dates: start: 20050401, end: 20050801
  2. RIBAVIRIN [Suspect]
     Dosage: UNK
     Dates: start: 20130412
  3. PEGASYS [Suspect]
     Indication: HEPATITIS C
     Dosage: UNK
     Dates: start: 20050401, end: 20050801
  4. PEGASYS [Suspect]
     Dosage: UNK
     Dates: start: 20130220
  5. PEGINTRON [Suspect]
     Indication: HEPATITIS C
     Dosage: UNK
     Dates: start: 20130412
  6. VICTRELIS [Suspect]
     Indication: HEPATITIS C
     Dosage: UNK
     Route: 048
     Dates: start: 20130510

REACTIONS (2)
  - Drug ineffective [Unknown]
  - White blood cell count decreased [Unknown]
